FAERS Safety Report 12153662 (Version 2)
Quarter: 2016Q1

REPORT INFORMATION
  Report Type: Spontaneous
  Country: US (occurrence: US)
  Receive Date: 20160307
  Receipt Date: 20160316
  Transmission Date: 20160526
  Serious: No
  Sender: FDA-Public Use
  Company Number: PHEH2016US005147

PATIENT
  Age: 17 Year
  Sex: Female
  Weight: 39.1 kg

DRUGS (2)
  1. ACETAMINOPHEN. [Concomitant]
     Active Substance: ACETAMINOPHEN
     Indication: PRODUCT USED FOR UNKNOWN INDICATION
     Route: 065
  2. JADENU [Suspect]
     Active Substance: DEFERASIROX
     Indication: CONGENITAL APLASTIC ANAEMIA
     Dosage: 1080 MG, QD (27.4 MG/KG)
     Route: 048
     Dates: start: 20150729, end: 20151217

REACTIONS (8)
  - Liver function test increased [Unknown]
  - Blood creatinine increased [Recovered/Resolved]
  - Malaise [Unknown]
  - Viral infection [Unknown]
  - Nausea [Unknown]
  - Hepatic enzyme increased [Recovered/Resolved]
  - Blood urine [Recovered/Resolved]
  - Fatigue [Unknown]

NARRATIVE: CASE EVENT DATE: 20151209
